FAERS Safety Report 8887290 (Version 1)
Quarter: 2012Q4

REPORT INFORMATION
  Report Type: 
  Country: US (occurrence: US)
  Receive Date: 20121105
  Receipt Date: 20121105
  Transmission Date: 20130627
  Serious: Yes (Hospitalization)
  Sender: FDA-Public Use
  Company Number: US-B.I. PHARMACEUTICALS,INC./RIDGEFIELD-2012-BP-26936BP

PATIENT
  Age: 74 None
  Sex: Female
  Weight: 57 kg

DRUGS (3)
  1. AGGRENOX [Suspect]
     Indication: CEREBROVASCULAR ACCIDENT PROPHYLAXIS
     Route: 048
     Dates: start: 1997
  2. ARICEPT [Concomitant]
     Indication: DEMENTIA
     Dosage: 10 mg
     Route: 048
     Dates: start: 201112, end: 201206
  3. SIMVASTATIN [Concomitant]
     Indication: BLOOD CHOLESTEROL ABNORMAL
     Dosage: 20 mg
     Route: 048
     Dates: start: 1997

REACTIONS (14)
  - Chest pain [Recovered/Resolved]
  - Dehydration [Recovered/Resolved]
  - Dizziness [Not Recovered/Not Resolved]
  - Fatigue [Not Recovered/Not Resolved]
  - Asthenia [Not Recovered/Not Resolved]
  - Faeces discoloured [Not Recovered/Not Resolved]
  - Dementia [Not Recovered/Not Resolved]
  - Hypersomnia [Not Recovered/Not Resolved]
  - Abnormal loss of weight [Recovered/Resolved]
  - Decubitus ulcer [Not Recovered/Not Resolved]
  - Tendonitis [Recovered/Resolved]
  - Urinary tract infection [Recovered/Resolved]
  - Gallbladder disorder [Not Recovered/Not Resolved]
  - Hypotension [Unknown]
